FAERS Safety Report 7346843-6 (Version None)
Quarter: 2011Q1

REPORT INFORMATION
  Report Type: 
  Country: None (occurrence: None)
  Receive Date: 20110311
  Receipt Date: 20101115
  Transmission Date: 20110831
  Serious: Yes (Death)
  Sender: FDA-Public Use
  Company Number: US-JNJFOC-20101206235

PATIENT
  Age: 62 Year
  Sex: Female

DRUGS (4)
  1. DOXORUBICIN HCL [Suspect]
     Indication: HODGKIN'S DISEASE
     Route: 042
  2. GEMCITABINE [Suspect]
     Indication: HODGKIN'S DISEASE
     Route: 042
  3. MONOCLONAL ANTIBODY SGN-30 [Suspect]
     Indication: HODGKIN'S DISEASE
     Route: 065
  4. VINORELBINE [Suspect]
     Indication: HODGKIN'S DISEASE
     Route: 042

REACTIONS (1)
  - PNEUMONITIS [None]
